FAERS Safety Report 7916929-3 (Version None)
Quarter: 2011Q4

REPORT INFORMATION
  Report Type: 
  Country: None (occurrence: None)
  Receive Date: 20111116
  Receipt Date: 20111115
  Transmission Date: 20120403
  Serious: Yes (Other)
  Sender: FDA-Public Use
  Company Number: US-PFIZER INC-2011280248

PATIENT
  Age: 33 Year
  Sex: Female
  Weight: 63.49 kg

DRUGS (2)
  1. VENLAFAXINE HCL [Suspect]
     Indication: ANXIETY
     Dosage: UNK
     Dates: end: 20110101
  2. VENLAFAXINE HCL [Suspect]
     Indication: SPEECH DISORDER

REACTIONS (1)
  - HYPERSENSITIVITY [None]
